FAERS Safety Report 4275239-9 (Version None)
Quarter: 2004Q1

REPORT INFORMATION
  Report Type: 
  Country: None (occurrence: None)
  Receive Date: 20040116
  Receipt Date: 20040108
  Transmission Date: 20041129
  Serious: Yes (Other)
  Sender: FDA-Public Use
  Company Number: 2003-12-1961

PATIENT
  Sex: Female

DRUGS (2)
  1. CORICIDIN [Suspect]
     Dosage: 6 TABLETS ORAL
     Route: 048
  2. ANTIBIOTIC [Concomitant]

REACTIONS (5)
  - BLOOD PRESSURE INCREASED [None]
  - COMA [None]
  - DISORIENTATION [None]
  - HEART RATE INCREASED [None]
  - OVERDOSE [None]
